FAERS Safety Report 17735327 (Version 2)
Quarter: 2020Q2

REPORT INFORMATION
  Report Type: Spontaneous
  Country: US (occurrence: US)
  Receive Date: 20200501
  Receipt Date: 20200601
  Transmission Date: 20200714
  Serious: Yes (Hospitalization)
  Sender: FDA-Public Use
  Company Number: US-TEVA-2020-US-1228004

PATIENT
  Age: 80 Year
  Sex: Male

DRUGS (2)
  1. ZOLPIDEM [Suspect]
     Active Substance: ZOLPIDEM TARTRATE
     Indication: INSOMNIA
     Route: 065
  2. GABAPENTIN. [Suspect]
     Active Substance: GABAPENTIN
     Indication: INSOMNIA
     Route: 065

REACTIONS (7)
  - Drug dependence [Unknown]
  - Accidental overdose [Unknown]
  - Gait disturbance [Unknown]
  - Fall [Recovered/Resolved]
  - Memory impairment [Recovering/Resolving]
  - Confusional state [Recovering/Resolving]
  - Drug tolerance [Unknown]
